FAERS Safety Report 19892647 (Version 1)
Quarter: 2021Q3

REPORT INFORMATION
  Report Type: Report from Study
  Country: US (occurrence: US)
  Receive Date: 20210929
  Receipt Date: 20210929
  Transmission Date: 20211014
  Serious: Yes (Other)
  Sender: FDA-Public Use
  Company Number: US-EMD SERONO-9259416

PATIENT
  Age: 56 Year
  Sex: Male
  Weight: 93 kg

DRUGS (2)
  1. SEROSTIM [Suspect]
     Active Substance: SOMATROPIN
     Indication: LIPODYSTROPHY ACQUIRED
     Route: 058
     Dates: start: 20180511
  2. SEROSTIM [Suspect]
     Active Substance: SOMATROPIN
     Indication: CACHEXIA
     Dosage: SEROSTIM 6MG 7?VIAL PACK
     Route: 058
     Dates: start: 20171116

REACTIONS (1)
  - Prostatectomy [Recovered/Resolved]

NARRATIVE: CASE EVENT DATE: 20190819
